FAERS Safety Report 23974333 (Version 1)
Quarter: 2024Q2

REPORT INFORMATION
  Report Type: Spontaneous
  Country: ES (occurrence: ES)
  Receive Date: 20240614
  Receipt Date: 20240614
  Transmission Date: 20240716
  Serious: Yes (Other)
  Sender: FDA-Public Use
  Company Number: ES-Blueprint Medicines Corporation-SP-ES-2024-001189

PATIENT

DRUGS (3)
  1. AVAPRITINIB [Suspect]
     Active Substance: AVAPRITINIB
     Indication: Advanced systemic mastocytosis
     Route: 065
  2. AVAPRITINIB [Suspect]
     Active Substance: AVAPRITINIB
     Indication: Polycythaemia vera
  3. AVAPRITINIB [Suspect]
     Active Substance: AVAPRITINIB
     Indication: Advanced systemic mastocytosis

REACTIONS (6)
  - Renal impairment [Unknown]
  - Periorbital oedema [Recovering/Resolving]
  - Blood bilirubin increased [Recovering/Resolving]
  - Flatulence [Unknown]
  - Urine output fluctuation [Recovering/Resolving]
  - Haemoglobin increased [Recovering/Resolving]
